FAERS Safety Report 4281788-X (Version None)
Quarter: 2004Q1

REPORT INFORMATION
  Report Type: 
  Country: None (occurrence: None)
  Receive Date: 20040128
  Receipt Date: 20040115
  Transmission Date: 20041129
  Serious: Yes (Death, Hospitalization)
  Sender: FDA-Public Use
  Company Number: KDL050741

PATIENT
  Age: 75 Year
  Sex: Male

DRUGS (9)
  1. ENBREL [Suspect]
     Indication: RHEUMATOID ARTHRITIS
     Dosage: 25 MG, TWICE WEEKLY, SC
     Route: 058
     Dates: start: 19991001, end: 20030201
  2. PREDNISONE [Concomitant]
  3. HYDROXYCHLOROQUINE PHOSPHATE [Concomitant]
  4. SULFASALAZINE [Concomitant]
  5. METHOTREXATE [Concomitant]
  6. ENALAPRIL [Concomitant]
  7. FUROSEMIDE [Concomitant]
  8. ATORVASTATIN CALCIUM [Concomitant]
  9. METOPROLOL [Concomitant]

REACTIONS (14)
  - ACIDOSIS [None]
  - ACTINIC KERATOSIS [None]
  - ATRIAL FIBRILLATION [None]
  - BACK PAIN [None]
  - BACTERAEMIA [None]
  - CORONARY ARTERY OCCLUSION [None]
  - ENDOCARDITIS STAPHYLOCOCCAL [None]
  - EXTRADURAL ABSCESS [None]
  - LEUKOCYTOSIS [None]
  - PULMONARY ALVEOLAR HAEMORRHAGE [None]
  - PULMONARY ARTERIAL WEDGE PRESSURE INCREASED [None]
  - RENAL FAILURE [None]
  - RESPIRATORY FAILURE [None]
  - VENTRICULAR DYSFUNCTION [None]
